APPROVED DRUG PRODUCT: ALORA
Active Ingredient: ESTRADIOL
Strength: 0.025MG/24HR
Dosage Form/Route: FILM, EXTENDED RELEASE;TRANSDERMAL
Application: N020655 | Product #004
Applicant: ABBVIE INC
Approved: Apr 5, 2002 | RLD: No | RS: No | Type: DISCN